FAERS Safety Report 20473625 (Version 1)
Quarter: 2022Q1

REPORT INFORMATION
  Report Type: Spontaneous
  Country: US (occurrence: US)
  Receive Date: 20220215
  Receipt Date: 20220215
  Transmission Date: 20220424
  Serious: No
  Sender: FDA-Public Use
  Company Number: US-VIIV HEALTHCARE LIMITED-US2022018878

PATIENT
  Age: 47 Year
  Sex: Female

DRUGS (2)
  1. RILPIVIRINE [Suspect]
     Active Substance: RILPIVIRINE
     Indication: HIV infection
     Dosage: UNK UNK, Z, 400MG CABOTEGRAVIR + 600MG RILPIVIRINE TWO INJECTIONS, ONCE MONTHLY
     Route: 042
     Dates: start: 20211007
  2. CABOTEGRAVIR [Suspect]
     Active Substance: CABOTEGRAVIR
     Indication: HIV infection
     Dosage: UNK UNK, Z, 400MG CABOTEGRAVIR + 600MG RILPIVIRINE TWO INJECTIONS, ONCE MONTHLY
     Route: 042
     Dates: start: 20211007

REACTIONS (1)
  - Injection site pain [Not Recovered/Not Resolved]

NARRATIVE: CASE EVENT DATE: 20220125
